FAERS Safety Report 8016518-9 (Version None)
Quarter: 2011Q4

REPORT INFORMATION
  Report Type: 
  Country: None (occurrence: None)
  Receive Date: 20111230
  Receipt Date: 20111221
  Transmission Date: 20120403
  Serious: Yes (Other)
  Sender: FDA-Public Use
  Company Number: CN-ASTRAZENECA-2011SE77217

PATIENT
  Age: 66 Year
  Sex: Female
  Weight: 54 kg

DRUGS (9)
  1. FENTANYL [Suspect]
     Indication: ANALGESIC THERAPY
     Route: 042
  2. FENTANYL [Suspect]
     Indication: INDUCTION OF ANAESTHESIA
     Route: 042
  3. VECURONIUM BROMIDE [Suspect]
     Indication: INDUCTION OF ANAESTHESIA
     Route: 042
  4. SODIUM LACTATE IN PLASTIC CONTAINER [Suspect]
     Indication: INDUCTION OF ANAESTHESIA
     Dosage: 10 ML/(KG.H)
     Route: 042
  5. PROPOFOL [Suspect]
     Indication: INDUCTION OF ANAESTHESIA
     Route: 042
  6. PROPOFOL [Suspect]
     Dosage: 5-7 MG/(KG.H)
     Route: 042
  7. MIDAZOLAM [Suspect]
     Route: 048
  8. VECURONIUM BROMIDE [Suspect]
     Indication: MAINTENANCE OF ANAESTHESIA
     Route: 042
  9. FENTANYL [Suspect]
     Indication: MAINTENANCE OF ANAESTHESIA
     Route: 042

REACTIONS (1)
  - BRAIN STEM AUDITORY EVOKED RESPONSE ABNORMAL [None]
